FAERS Safety Report 10840686 (Version 1)
Quarter: 2015Q1

REPORT INFORMATION
  Report Type: Spontaneous
  Country: US (occurrence: US)
  Receive Date: 20150220
  Receipt Date: 20150220
  Transmission Date: 20150721
  Serious: No
  Sender: FDA-Public Use
  Company Number: US-ABBVIE-14P-163-1244360-00

PATIENT
  Age: 78 Year
  Sex: Female
  Weight: 77.18 kg

DRUGS (3)
  1. HUMIRA [Suspect]
     Active Substance: ADALIMUMAB
     Dates: start: 201312
  2. HUMIRA [Suspect]
     Active Substance: ADALIMUMAB
     Dates: start: 2010, end: 201311
  3. HUMIRA [Suspect]
     Active Substance: ADALIMUMAB
     Indication: PSORIASIS
     Dates: start: 2010, end: 2010

REACTIONS (5)
  - Device issue [Recovered/Resolved]
  - Chemical burn of skin [Recovered/Resolved]
  - Erythema [Not Recovered/Not Resolved]
  - Accidental exposure to product [Unknown]
  - Blood cholesterol increased [Not Recovered/Not Resolved]

NARRATIVE: CASE EVENT DATE: 201403
